FAERS Safety Report 22311165 (Version 2)
Quarter: 2023Q2

REPORT INFORMATION
  Report Type: Report from Study
  Country: PT (occurrence: PT)
  Receive Date: 20230511
  Receipt Date: 20230526
  Transmission Date: 20230721
  Serious: Yes (Other)
  Sender: FDA-Public Use
  Company Number: PT-TEVA-2023-PT-2885549

PATIENT

DRUGS (1)
  1. MELPHALAN [Suspect]
     Active Substance: MELPHALAN
     Indication: Retinoblastoma
     Dosage: FIRST-LINE INTRA-ARTERIAL CHEMOTHERAPY
     Route: 013

REACTIONS (2)
  - Chorioretinal disorder [Unknown]
  - Psychogenic blindness [Unknown]
